FAERS Safety Report 4528008-6 (Version None)
Quarter: 2004Q4

REPORT INFORMATION
  Report Type: 
  Country: None (occurrence: None)
  Receive Date: 20041123
  Receipt Date: 20040309
  Transmission Date: 20050328
  Serious: Yes (Other)
  Sender: FDA-Public Use
  Company Number: 2004016395

PATIENT
  Age: 65 Year
  Sex: Female
  Weight: 93.441 kg

DRUGS (3)
  1. LIPITOR [Suspect]
     Indication: BLOOD CHOLESTEROL
     Dosage: 20 MG (DAILY), ORAL
     Route: 048
     Dates: start: 20020101
  2. NICOTINIC ACID [Suspect]
     Indication: BLOOD CHOLESTEROL
     Dates: start: 20030101
  3. AMLODIPINE BESILATE (AMLODIPINE) [Concomitant]

REACTIONS (6)
  - HEPATIC ENZYME INCREASED [None]
  - ILL-DEFINED DISORDER [None]
  - MUSCLE CRAMP [None]
  - MUSCLE SPASMS [None]
  - SKIN DISCOLOURATION [None]
  - VIRAL INFECTION [None]
